FAERS Safety Report 4868128-X (Version None)
Quarter: 2005Q4

REPORT INFORMATION
  Report Type: 
  Country: None (occurrence: None)
  Receive Date: 20051229
  Receipt Date: 20051220
  Transmission Date: 20060501
  Serious: Yes (Other)
  Sender: FDA-Public Use
  Company Number: PHBS2005SE18723

PATIENT
  Sex: Female

DRUGS (1)
  1. SANDOSTATIN LAR [Suspect]
     Indication: CARCINOID TUMOUR OF THE CAECUM
     Dosage: 20 MG/DAY

REACTIONS (4)
  - BLOOD CREATININE INCREASED [None]
  - DIALYSIS [None]
  - NEPHROCALCINOSIS [None]
  - TUBULOINTERSTITIAL NEPHRITIS [None]
